FAERS Safety Report 8323093-8 (Version None)
Quarter: 2012Q2

REPORT INFORMATION
  Report Type: 
  Country: None (occurrence: None)
  Receive Date: 20120430
  Receipt Date: 20120423
  Transmission Date: 20120825
  Serious: Yes (Hospitalization)
  Sender: FDA-Public Use
  Company Number: US-TEVA-335236USA

PATIENT
  Age: 24 Year
  Sex: Female

DRUGS (1)
  1. PHENTERMINE [Suspect]
     Indication: OBESITY
     Route: 065

REACTIONS (2)
  - WEBER-CHRISTIAN DISEASE [None]
  - PANNICULITIS [None]
